FAERS Safety Report 9139902 (Version 1)
Quarter: 2013Q1

REPORT INFORMATION
  Report Type: Spontaneous
  Country: US (occurrence: US)
  Receive Date: 20130305
  Receipt Date: 20130305
  Transmission Date: 20140127
  Serious: Yes (Disabling)
  Sender: FDA-Public Use
  Company Number: US-BAYER-2013-027360

PATIENT
  Age: 61 Year
  Sex: Male

DRUGS (1)
  1. BETASERON [Suspect]
     Indication: MULTIPLE SCLEROSIS
     Dosage: 0.25 MG, QOD
     Route: 058

REACTIONS (4)
  - Musculoskeletal disorder [None]
  - Musculoskeletal disorder [None]
  - Sensation of heaviness [None]
  - Mobility decreased [None]
